FAERS Safety Report 6383549-4 (Version None)
Quarter: 2009Q3

REPORT INFORMATION
  Report Type: 
  Country: None (occurrence: None)
  Receive Date: 20090928
  Receipt Date: 20090917
  Transmission Date: 20100115
  Serious: Yes (Life-Threatening)
  Sender: FDA-Public Use
  Company Number: 384383

PATIENT
  Age: 16 Year
  Sex: Male
  Weight: 50 kg

DRUGS (3)
  1. PROPOFOL [Suspect]
     Indication: MAINTENANCE OF ANAESTHESIA
     Dosage: 30 MG, 1HOUR
     Dates: start: 20070101, end: 20070101
  2. LIDOCAINE [Suspect]
     Indication: VENTRICULAR FIBRILLATION
     Dosage: 100 MG, INJECTION
     Dates: start: 20070101, end: 20070101
  3. (ANESTHETICS, GENERAL) [Concomitant]

REACTIONS (8)
  - ANAESTHETIC COMPLICATION CARDIAC [None]
  - BLOOD CREATINE PHOSPHOKINASE INCREASED [None]
  - BLOOD LACTATE DEHYDROGENASE INCREASED [None]
  - BLOOD PRESSURE INCREASED [None]
  - BRUGADA SYNDROME [None]
  - CARDIOMYOPATHY [None]
  - ELECTROCARDIOGRAM QT PROLONGED [None]
  - HYPOKALAEMIA [None]
